FAERS Safety Report 21151171 (Version 1)
Quarter: 2022Q3

REPORT INFORMATION
  Report Type: Spontaneous
  Country: FR (occurrence: FR)
  Receive Date: 20220730
  Receipt Date: 20220730
  Transmission Date: 20221026
  Serious: Yes (Congenital Anomaly)
  Sender: FDA-Public Use
  Company Number: None

PATIENT
  Sex: Female

DRUGS (2)
  1. OMEPRAZOLE [Suspect]
     Active Substance: OMEPRAZOLE
     Indication: Foetal exposure during pregnancy
     Route: 065
     Dates: start: 20210802
  2. TIMOLOL MALEATE [Suspect]
     Active Substance: TIMOLOL MALEATE
     Indication: Foetal exposure during pregnancy
     Dosage: UNIT DOSE : 1 GTT , FREQUENCY TIME : 1 DAY
     Route: 065
     Dates: start: 20210802

REACTIONS (2)
  - Microcephaly [Not Recovered/Not Resolved]
  - Foetal growth restriction [Not Recovered/Not Resolved]

NARRATIVE: CASE EVENT DATE: 20210701
